FAERS Safety Report 7964949-5 (Version None)
Quarter: 2011Q4

REPORT INFORMATION
  Report Type: 
  Country: None (occurrence: None)
  Receive Date: 20111208
  Receipt Date: 20111208
  Transmission Date: 20120403
  Serious: Yes (Other)
  Sender: FDA-Public Use
  Company Number: None

PATIENT
  Age: 61 Year
  Sex: Female
  Weight: 70.306 kg

DRUGS (2)
  1. LUOXETINE HCL [Concomitant]
     Route: 048
  2. CRESTOR [Suspect]
     Indication: BLOOD CHOLESTEROL INCREASED
     Dosage: 5 MG
     Route: 048
     Dates: start: 20111022, end: 20111123

REACTIONS (6)
  - MYOCARDIAL INFARCTION [None]
  - SLEEP DISORDER [None]
  - MUSCULOSKELETAL PAIN [None]
  - PALPITATIONS [None]
  - ARTHRALGIA [None]
  - HEADACHE [None]
